FAERS Safety Report 20020684 (Version 1)
Quarter: 2021Q4

REPORT INFORMATION
  Report Type: Spontaneous
  Country: IN (occurrence: None)
  Receive Date: 20211101
  Receipt Date: 20211101
  Transmission Date: 20220303
  Serious: Yes (Other)
  Sender: FDA-Public Use
  Company Number: 2021A783769

PATIENT
  Age: 60 Year
  Sex: Female

DRUGS (3)
  1. ROSUVASTATIN [Suspect]
     Active Substance: ROSUVASTATIN
     Route: 048
  2. ASPIRIN [Concomitant]
     Active Substance: ASPIRIN
     Route: 065
  3. CLOPILET [Concomitant]
     Route: 065

REACTIONS (2)
  - Rhabdomyolysis [Not Recovered/Not Resolved]
  - Acute kidney injury [Not Recovered/Not Resolved]
